FAERS Safety Report 7934677-0 (Version None)
Quarter: 2011Q4

REPORT INFORMATION
  Report Type: 
  Country: None (occurrence: None)
  Receive Date: 20111122
  Receipt Date: 20111115
  Transmission Date: 20120403
  Serious: Yes (Hospitalization, Other)
  Sender: FDA-Public Use
  Company Number: US-MERCK-1108USA00831

PATIENT
  Age: 56 Year
  Sex: Female

DRUGS (6)
  1. CITRACAL [Concomitant]
     Route: 048
     Dates: start: 20000101
  2. FOSAMAX [Suspect]
     Indication: PROPHYLAXIS
     Route: 048
     Dates: start: 20010101, end: 20080801
  3. FOSAMAX [Suspect]
     Route: 048
  4. FLONASE [Concomitant]
     Route: 065
  5. CALCIUM CARBONATE [Concomitant]
     Route: 048
     Dates: start: 20000101
  6. FOSAMAX [Suspect]
     Route: 048

REACTIONS (32)
  - ASTHMA [None]
  - GINGIVAL DISORDER [None]
  - POST PROCEDURAL DRAINAGE [None]
  - ARTHRITIS [None]
  - DIARRHOEA [None]
  - BURSITIS [None]
  - ARTHROPATHY [None]
  - PAIN [None]
  - SYNOVITIS [None]
  - CYST [None]
  - FALL [None]
  - FEMUR FRACTURE [None]
  - OSTEOARTHRITIS [None]
  - BLOOD CHOLESTEROL INCREASED [None]
  - PATELLOFEMORAL PAIN SYNDROME [None]
  - POLLAKIURIA [None]
  - HIP FRACTURE [None]
  - ARTHRALGIA [None]
  - IMPAIRED HEALING [None]
  - TREMOR [None]
  - TENDON DISORDER [None]
  - CLOSTRIDIAL INFECTION [None]
  - PAIN IN EXTREMITY [None]
  - INFLAMMATION [None]
  - INFECTION [None]
  - TOOTH DISORDER [None]
  - MUSCULOSKELETAL PAIN [None]
  - JOINT EFFUSION [None]
  - CATARACT [None]
  - OSTEOCHONDROSIS [None]
  - TOOTHACHE [None]
  - DIVERTICULUM [None]
